FAERS Safety Report 4989138-8 (Version None)
Quarter: 2006Q1

REPORT INFORMATION
  Report Type: 
  Country: None (occurrence: None)
  Receive Date: 20060314
  Receipt Date: 20051223
  Transmission Date: 20060701
  Serious: Yes (Other)
  Sender: FDA-Public Use
  Company Number: 200515181BCC

PATIENT
  Age: 48 Year
  Sex: Male
  Weight: 79.3795 kg

DRUGS (1)
  1. ALEVE (CAPLET) [Suspect]
     Dosage: 220 MG, ONCE, ORAL
     Route: 048
     Dates: start: 20051223

REACTIONS (2)
  - MALAISE [None]
  - WHEEZING [None]
